FAERS Safety Report 9790832 (Version 1)
Quarter: 2013Q4

REPORT INFORMATION
  Report Type: Spontaneous
  Country: US (occurrence: US)
  Receive Date: 20131231
  Receipt Date: 20131231
  Transmission Date: 20140711
  Serious: No
  Sender: FDA-Public Use
  Company Number: US-BAYER-2013-159106

PATIENT
  Sex: 0

DRUGS (5)
  1. ALEVE CAPLET [Suspect]
  2. BAYER GENUINE ASPIRIN ORIGINAL STRENGTH [Suspect]
  3. TYLENOL [PARACETAMOL] [Suspect]
  4. EXCEDRIN MIGRAINE [Suspect]
  5. IBUPROFEN [Suspect]

REACTIONS (1)
  - Drug ineffective [None]
